FAERS Safety Report 9651446 (Version 1)
Quarter: 2013Q4

REPORT INFORMATION
  Report Type: Spontaneous
  Country: IT (occurrence: IT)
  Receive Date: 20131029
  Receipt Date: 20131029
  Transmission Date: 20140711
  Serious: Yes (Hospitalization)
  Sender: FDA-Public Use
  Company Number: IT-AMGEN-ITASP2013075332

PATIENT
  Age: 75 Year
  Sex: Female

DRUGS (5)
  1. PROLIA [Suspect]
     Indication: OSTEOPOROSIS
     Dosage: 60 MG, CYCLICAL
     Route: 058
     Dates: start: 20131002, end: 20131002
  2. METHOTREXATE [Concomitant]
     Dosage: 15 MG, UNK
     Route: 058
  3. METFORMIN HYDROCHLORIDE [Concomitant]
  4. REPAGLINIDE [Concomitant]
  5. MEDROL                             /00049601/ [Concomitant]
     Dosage: 4 MG, UNK
     Route: 048

REACTIONS (2)
  - Erythrodermic psoriasis [Recovering/Resolving]
  - Pruritus [Recovering/Resolving]
